FAERS Safety Report 5058399-1 (Version None)
Quarter: 2006Q3

REPORT INFORMATION
  Report Type: 
  Country: None (occurrence: None)
  Receive Date: 20060721
  Receipt Date: 20060712
  Transmission Date: 20061208
  Serious: Yes (Disabling)
  Sender: FDA-Public Use
  Company Number: NO-ABBOTT-06P-122-0338064-00

PATIENT
  Sex: Male

DRUGS (3)
  1. HUMIRA [Suspect]
     Indication: DRUG USE FOR UNKNOWN INDICATION
     Route: 058
  2. REMICADE [Suspect]
     Indication: ARRHYTHMIA PROPHYLAXIS
     Dates: end: 20050101
  3. ENBREL [Suspect]
     Indication: ARRHYTHMIA PROPHYLAXIS
     Dates: end: 20050101

REACTIONS (1)
  - VASCULAR ENCEPHALOPATHY [None]
